FAERS Safety Report 23683022 (Version 1)
Quarter: 2024Q1

REPORT INFORMATION
  Report Type: Spontaneous
  Country: IT (occurrence: IT)
  Receive Date: 20240328
  Receipt Date: 20240328
  Transmission Date: 20240410
  Serious: Yes (Death)
  Sender: FDA-Public Use
  Company Number: None

PATIENT
  Age: 74 Year
  Sex: Female

DRUGS (1)
  1. KYMRIAH [Suspect]
     Active Substance: TISAGENLECLEUCEL
     Indication: Product used for unknown indication
     Dosage: 1 DOSAGE FORM, ONCE/SINGLE (SINGOLA SOMMINISTRAZIONE)
     Route: 042
     Dates: start: 20230519

REACTIONS (4)
  - Pyrexia [Fatal]
  - Ventricular fibrillation [Fatal]
  - Cytokine release syndrome [Fatal]
  - Hypotension [Fatal]
